FAERS Safety Report 22589593 (Version 2)
Quarter: 2024Q4

REPORT INFORMATION
  Report Type: Spontaneous
  Country: CA (occurrence: CA)
  Receive Date: 20230612
  Receipt Date: 20241226
  Transmission Date: 20250115
  Serious: Yes (Hospitalization, Other)
  Sender: MYLAN
  Company Number: CA-MYLANLABS-2023M1060988

PATIENT
  Age: 75 Year
  Sex: Female
  Weight: 70 kg

DRUGS (28)
  1. GABAPENTIN [Suspect]
     Active Substance: GABAPENTIN
     Indication: Arthralgia
     Dosage: UNK
     Route: 065
  2. PREGABALIN [Suspect]
     Active Substance: PREGABALIN
     Indication: Arthralgia
     Dosage: UNK
     Route: 065
  3. PREGABALIN [Suspect]
     Active Substance: PREGABALIN
     Indication: Arthralgia
     Dosage: UNK
     Route: 065
  4. AZARGA [Suspect]
     Active Substance: BRINZOLAMIDE\TIMOLOL MALEATE
     Indication: Glaucoma
     Dosage: UNK
     Route: 065
  5. AZOPT [Suspect]
     Active Substance: BRINZOLAMIDE
     Indication: Glaucoma
     Dosage: UNK
     Route: 065
  6. ESTRADIOL [Suspect]
     Active Substance: ESTRADIOL
     Indication: Product used for unknown indication
     Dosage: UNK
     Route: 065
  7. NAPROXEN [Suspect]
     Active Substance: NAPROXEN
     Indication: Arthralgia
     Dosage: UNK
     Route: 065
  8. ACETAMINOPHEN [Concomitant]
     Active Substance: ACETAMINOPHEN
     Indication: Rhinitis
     Dosage: UNK
     Route: 065
  9. AMOXICILLIN [Concomitant]
     Active Substance: AMOXICILLIN
     Indication: Sinusitis
     Dosage: UNK
     Route: 065
  10. ATORVASTATIN CALCIUM [Concomitant]
     Active Substance: ATORVASTATIN CALCIUM
     Indication: Dyslipidaemia
     Dosage: UNK
     Route: 065
  11. CALCIUM CARBONATE [Concomitant]
     Active Substance: CALCIUM CARBONATE
     Indication: Product used for unknown indication
     Dosage: UNK
     Route: 065
  12. CLONAZEPAM [Concomitant]
     Active Substance: CLONAZEPAM
     Indication: Product used for unknown indication
     Dosage: UNK
     Route: 065
  13. DICLOFENAC [Concomitant]
     Active Substance: DICLOFENAC
     Indication: Arthralgia
     Dosage: UNK
     Route: 065
  14. ESTRADIOL [Concomitant]
     Active Substance: ESTRADIOL
     Indication: Menopausal symptoms
     Dosage: UNK
     Route: 065
  15. IBUPROFEN [Concomitant]
     Active Substance: IBUPROFEN
     Indication: Arthralgia
     Dosage: UNK
     Route: 065
  16. IPRATROPIUM [Concomitant]
     Active Substance: IPRATROPIUM
     Indication: Rhinitis
     Dosage: UNK
     Route: 045
  17. LATANOPROST [Concomitant]
     Active Substance: LATANOPROST
     Indication: Glaucoma
     Dosage: UNK
     Route: 065
  18. TELMISARTAN [Concomitant]
     Active Substance: TELMISARTAN
     Dosage: UNK
     Route: 065
  19. VITAMIN B6 [Concomitant]
     Active Substance: PYRIDOXINE HYDROCHLORIDE
     Dosage: UNK
     Route: 065
  20. VITAMIN D3 [Concomitant]
     Active Substance: CHOLECALCIFEROL
     Dosage: UNK
     Route: 065
  21. ZOPICLONE [Concomitant]
     Active Substance: ZOPICLONE
     Indication: Insomnia
     Dosage: UNK
     Route: 065
  22. CALCIUM CARBONATE [Concomitant]
     Active Substance: CALCIUM CARBONATE
     Indication: Product used for unknown indication
     Dosage: UNK
     Route: 065
  23. CLONAZEPAM [Concomitant]
     Active Substance: CLONAZEPAM
     Indication: Insomnia
     Dosage: UNK
     Route: 065
  24. TELMISARTAN [Concomitant]
     Active Substance: TELMISARTAN
     Indication: Hypertension
     Dosage: UNK
     Route: 065
  25. VITAMIN B6 [Concomitant]
     Active Substance: PYRIDOXINE HYDROCHLORIDE
     Indication: Product used for unknown indication
     Dosage: UNK
     Route: 065
  26. VITAMIN D3 [Concomitant]
     Active Substance: CHOLECALCIFEROL
     Indication: Product used for unknown indication
     Dosage: UNK
     Route: 065
  27. ZOPICLONE [Concomitant]
     Active Substance: ZOPICLONE
     Indication: Insomnia
     Dosage: UNK
     Route: 065
  28. IPRATROPIUM BROMIDE [Concomitant]
     Active Substance: IPRATROPIUM BROMIDE
     Indication: Rhinitis
     Dosage: UNK (INTRA-NASAL)
     Route: 065

REACTIONS (6)
  - Nikolsky^s sign positive [Recovered/Resolved]
  - Rash erythematous [Recovered/Resolved]
  - Rash papular [Recovered/Resolved]
  - Toxic epidermal necrolysis [Recovered/Resolved]
  - Haemoglobin decreased [Recovered/Resolved]
  - Off label use [Recovered/Resolved]
